FAERS Safety Report 7469155-9 (Version None)
Quarter: 2011Q2

REPORT INFORMATION
  Report Type: 
  Country: None (occurrence: None)
  Receive Date: 20110510
  Receipt Date: 20110428
  Transmission Date: 20111010
  Serious: Yes (Other)
  Sender: FDA-Public Use
  Company Number: US-BAYER-2011-036761

PATIENT
  Sex: Female

DRUGS (1)
  1. MIRENA [Suspect]
     Dosage: 20 ?G, CONT
     Route: 015
     Dates: start: 20110427, end: 20110428

REACTIONS (3)
  - VULVOVAGINAL INJURY [None]
  - TRAUMATIC HAEMORRHAGE [None]
  - PROCEDURAL COMPLICATION [None]
